FAERS Safety Report 5339972-X (Version None)
Quarter: 2007Q2

REPORT INFORMATION
  Report Type: 
  Country: None (occurrence: None)
  Receive Date: 20070529
  Receipt Date: 20070515
  Transmission Date: 20071010
  Serious: Yes (Hospitalization, Other)
  Sender: FDA-Public Use
  Company Number: TPA2007A01024

PATIENT
  Age: 81 Year
  Sex: Female

DRUGS (4)
  1. ACTOS [Suspect]
     Dosage: 30 MG, 1 IN 1 D, PER ORAL
     Route: 048
  2. LIPITOR [Concomitant]
  3. DYAZIDE [Concomitant]
  4. AZOPT OPTHALMIC [Interacting]

REACTIONS (2)
  - INTERCEPTED DRUG DISPENSING ERROR [None]
  - PNEUMONIA [None]
